FAERS Safety Report 4851250-1 (Version None)
Quarter: 2005Q4

REPORT INFORMATION
  Report Type: 
  Country: None (occurrence: None)
  Receive Date: 20051212
  Receipt Date: 20051102
  Transmission Date: 20060501
  Serious: Yes (Hospitalization)
  Sender: FDA-Public Use
  Company Number: US-AMGEN-KDL156518

PATIENT
  Sex: Female

DRUGS (3)
  1. ENBREL [Suspect]
     Indication: RHEUMATOID ARTHRITIS
     Route: 058
     Dates: start: 20010514
  2. HUMIRA [Concomitant]
     Dates: start: 20030714, end: 20050315
  3. NAPROSYN [Concomitant]
     Route: 048

REACTIONS (10)
  - AUTOIMMUNE HEPATITIS [None]
  - GASTRIC HAEMORRHAGE [None]
  - HYPOALBUMINAEMIA [None]
  - LIVER DISORDER [None]
  - PERICARDIAL EFFUSION [None]
  - PLEURAL EFFUSION [None]
  - PULMONARY HYPERTENSION [None]
  - PYREXIA [None]
  - SEROSITIS [None]
  - SINUS TACHYCARDIA [None]
